FAERS Safety Report 7443652-4 (Version None)
Quarter: 2011Q2

REPORT INFORMATION
  Report Type: 
  Country: None (occurrence: None)
  Receive Date: 20110428
  Receipt Date: 20110420
  Transmission Date: 20111010
  Serious: Yes (Hospitalization)
  Sender: FDA-Public Use
  Company Number: ES-PFIZER INC-2011086130

PATIENT
  Age: 53 Year
  Sex: Female

DRUGS (1)
  1. VFEND [Suspect]
     Route: 048

REACTIONS (1)
  - DRUG INTOLERANCE [None]
